FAERS Safety Report 15968857 (Version 1)
Quarter: 2019Q1

REPORT INFORMATION
  Report Type: Spontaneous
  Country: US (occurrence: US)
  Receive Date: 20190215
  Receipt Date: 20190215
  Transmission Date: 20190418
  Serious: No
  Sender: FDA-Public Use
  Company Number: US-OTSUKA-2018_007130

PATIENT
  Age: 23 Year
  Sex: Male

DRUGS (10)
  1. MYCOPHENOLATE MOFETIL. [Concomitant]
     Active Substance: MYCOPHENOLATE MOFETIL
     Indication: GRAFT VERSUS HOST DISEASE
     Dosage: UNK (ON DAYS +5 THROUGH +28)
     Route: 065
  2. RABBIT-ATG [Concomitant]
     Active Substance: LAPINE T-LYMPHOCYTE IMMUNE GLOBULIN
     Indication: STEM CELL TRANSPLANT
     Dosage: 1.5 MG/KG, QD (ON DAYS -12 TO -10)
     Route: 042
  3. CYCLOPHOSPHAMIDE. [Concomitant]
     Active Substance: CYCLOPHOSPHAMIDE
     Indication: GRAFT VERSUS HOST DISEASE
     Dosage: 50 MG/KG, QD (ON DAYS +3 AND  +4)
     Route: 065
  4. BUSULFEX [Suspect]
     Active Substance: BUSULFAN
     Indication: STEM CELL TRANSPLANT
  5. BUSULFEX [Suspect]
     Active Substance: BUSULFAN
     Indication: SICKLE CELL DISEASE
     Dosage: 130 MG/M2, QD (FOR 4 DAYS ON DAYS -8 TO -5)
     Route: 042
  6. DEXAMETHASONE. [Concomitant]
     Active Substance: DEXAMETHASONE
     Indication: IMMUNOSUPPRESSION
     Dosage: 25 MG/M2, QD FOR 5 DAYS (ON DAYS -68 TO -64 AND ON -40 TO -36)
     Route: 042
  7. FLUDARABINE [Concomitant]
     Active Substance: FLUDARABINE PHOSPHATE
     Indication: IMMUNOSUPPRESSION
     Dosage: 40 MG/M2, QD (5 DAYS) (ON DAYS -68 TO -64 AND ON -40 TO -36)
     Route: 042
  8. FLUDARABINE [Concomitant]
     Active Substance: FLUDARABINE PHOSPHATE
     Indication: STEM CELL TRANSPLANT
     Dosage: 35 MG/M2, QD (FOR 6 DAYS ON -8 TO -3)
     Route: 042
  9. TACROLIMUS. [Concomitant]
     Active Substance: TACROLIMUS
     Indication: GRAFT VERSUS HOST DISEASE
     Dosage: UNK (STARTED  ON DAY +5)
     Route: 065
  10. BUSULFEX [Suspect]
     Active Substance: BUSULFAN
     Indication: THALASSAEMIA BETA

REACTIONS (1)
  - Product use in unapproved indication [Unknown]
